FAERS Safety Report 13380614 (Version 4)
Quarter: 2017Q3

REPORT INFORMATION
  Report Type: Spontaneous
  Country: IT (occurrence: IT)
  Receive Date: 20170329
  Receipt Date: 20170706
  Transmission Date: 20171127
  Serious: Yes (Other)
  Sender: FDA-Public Use
  Company Number: IT-ACCORD-049500

PATIENT
  Age: 69 Year
  Sex: Female
  Weight: 95 kg

DRUGS (11)
  1. HYDROCHLOROTHIAZIDE/VALSARTAN [Concomitant]
  2. TARGIN [Concomitant]
     Active Substance: NALOXONE HYDROCHLORIDE\OXYCODONE HYDROCHLORIDE
  3. OMEPRAZOLE. [Concomitant]
     Active Substance: OMEPRAZOLE
  4. FLUOROURACIL. [Suspect]
     Active Substance: FLUOROURACIL
     Indication: COLORECTAL ADENOCARCINOMA
     Dosage: ALSO RECEIVED 3630 MG CYCLICAL VIA IV ROUTE IN SAME DURATION
     Route: 040
     Dates: start: 20161121
  5. DELTACORTENE [Concomitant]
     Active Substance: PREDNISONE
  6. CARDIRENE [Concomitant]
     Active Substance: ASPIRIN DL-LYSINE
  7. LOBIVON [Concomitant]
     Active Substance: NEBIVOLOL HYDROCHLORIDE
  8. IRINOTECAN [Suspect]
     Active Substance: IRINOTECAN
     Indication: COLORECTAL ADENOCARCINOMA
     Dosage: DOSE WAS DISCONTINUED IN RESPONSE TO INFUSION RELATED REACTION
     Route: 042
     Dates: start: 20161121
  9. AVASTIN [Suspect]
     Active Substance: BEVACIZUMAB
     Indication: COLORECTAL ADENOCARCINOMA
     Route: 042
     Dates: start: 20161121
  10. DORZOLAMIDE [Concomitant]
     Active Substance: DORZOLAMIDE
  11. LEVOFOLINIC ACID [Concomitant]
     Active Substance: LEVOLEUCOVORIN
     Indication: COLORECTAL ADENOCARCINOMA
     Dosage: ANOTHER DOSE 330 MG RECEIVED DURING SAME DURATION. ALSO RECEIVED ON 22-NOV-2016.
     Dates: start: 20161121, end: 20170123

REACTIONS (7)
  - Tachycardia [Recovering/Resolving]
  - Infusion related reaction [Recovering/Resolving]
  - Thrombocytopenia [Unknown]
  - Epistaxis [Recovering/Resolving]
  - Anaemia [Recovering/Resolving]
  - Chest pain [Recovering/Resolving]
  - Nausea [Recovering/Resolving]

NARRATIVE: CASE EVENT DATE: 20161128
